FAERS Safety Report 9633973 (Version 2)
Quarter: 2013Q4

REPORT INFORMATION
  Report Type: Spontaneous
  Country: AU (occurrence: AU)
  Receive Date: 20131021
  Receipt Date: 20131219
  Transmission Date: 20140711
  Serious: Yes (Death)
  Sender: FDA-Public Use
  Company Number: AU-009507513-1310AUS007567

PATIENT
  Age: 34 Year
  Sex: Male

DRUGS (5)
  1. MIRTAZAPINE GA [Suspect]
     Dosage: UNK
     Route: 048
  2. DIAZEPAM [Suspect]
     Dosage: UNK
     Route: 048
  3. XANAX [Suspect]
     Dosage: UNK
  4. MORPHINE SULFATE [Suspect]
     Dosage: UNK
  5. SEROQUEL [Suspect]
     Dosage: UNK

REACTIONS (2)
  - Drug dependence [Fatal]
  - Overdose [Fatal]
